FAERS Safety Report 8308918-4 (Version None)
Quarter: 2012Q2

REPORT INFORMATION
  Report Type: 
  Country: None (occurrence: None)
  Receive Date: 20120424
  Receipt Date: 20120417
  Transmission Date: 20120825
  Serious: Yes (Other)
  Sender: FDA-Public Use
  Company Number: CHPA2012TR009079

PATIENT
  Sex: Female
  Weight: 59 kg

DRUGS (2)
  1. THERAFLU FORTE [Suspect]
     Indication: INFLUENZA
     Dosage: 1 DF, BID
     Route: 048
     Dates: start: 20120120, end: 20120131
  2. DRUG THERAPY NOS [Concomitant]
     Dosage: UNK, UNK

REACTIONS (5)
  - PYREXIA [None]
  - LOCALISED OEDEMA [None]
  - URTICARIA [None]
  - RASH [None]
  - PRURITUS [None]
